FAERS Safety Report 8799091 (Version 1)
Quarter: 2012Q4

REPORT INFORMATION
  Report Type: 
  Country: US (occurrence: US)
  Receive Date: 20120920
  Receipt Date: 20120920
  Transmission Date: 20130627
  Serious: No
  Sender: FDA-Public Use
  Company Number: US-ASTRAZENECA-2011SE64518

PATIENT

DRUGS (15)
  1. LISINOPRIL [Suspect]
     Route: 048
  2. MULTI VITAMIN [Concomitant]
  3. ASPIRIN [Concomitant]
  4. METOPROLOL [Concomitant]
     Indication: HYPERTENSION
  5. OMEPRAZOLE [Concomitant]
     Indication: DYSPEPSIA
  6. SYMBICORT [Concomitant]
  7. VENTOLIN HFA [Concomitant]
  8. MUSINEX [Concomitant]
  9. WARFARIN [Concomitant]
  10. HYDROCORTISONE [Concomitant]
  11. FINASTERIDE [Concomitant]
  12. BUDESONIDE [Concomitant]
  13. FIBER CHOICE [Concomitant]
  14. DOXYCYCLINE [Concomitant]
  15. METROGEL [Concomitant]

REACTIONS (1)
  - Adverse drug reaction [Unknown]
